FAERS Safety Report 5829021-9 (Version None)
Quarter: 2008Q3

REPORT INFORMATION
  Report Type: 
  Country: None (occurrence: None)
  Receive Date: 20080731
  Receipt Date: 20080725
  Transmission Date: 20090109
  Serious: Yes (Life-Threatening)
  Sender: FDA-Public Use
  Company Number: PHEH2008US06687

PATIENT
  Age: 25 Year
  Sex: Female

DRUGS (3)
  1. TEGRETOL [Suspect]
  2. LAMICTAL [Concomitant]
     Dosage: 150 MG, BID
  3. HYDROXYZINE HYDROCHLORIDE [Concomitant]
     Dosage: 100 MG, TID

REACTIONS (2)
  - ANTICONVULSANT DRUG LEVEL ABOVE THERAPEUTIC [None]
  - MEDICATION ERROR [None]
